FAERS Safety Report 25676480 (Version 3)
Quarter: 2025Q4

REPORT INFORMATION
  Report Type: Report from Study
  Country: US (occurrence: US)
  Receive Date: 20250813
  Receipt Date: 20251020
  Transmission Date: 20260118
  Serious: Yes (Hospitalization)
  Sender: ABBVIE
  Company Number: US-ABBVIE-6407751

PATIENT
  Age: 66 Year
  Sex: Female

DRUGS (4)
  1. CREON [Suspect]
     Active Substance: PANCRELIPASE AMYLASE\PANCRELIPASE LIPASE\PANCRELIPASE PROTEASE
     Indication: Product used for unknown indication
     Dosage: 36000 UNITS/ TOOK TWO WITH MEALS, ONE WITH A SNACK
     Route: 048
     Dates: start: 20240201
  2. CREON [Suspect]
     Active Substance: PANCRELIPASE AMYLASE\PANCRELIPASE LIPASE\PANCRELIPASE PROTEASE
     Indication: Product used for unknown indication
     Dosage: 24000 UNITS
     Route: 048
  3. CREON [Suspect]
     Active Substance: PANCRELIPASE AMYLASE\PANCRELIPASE LIPASE\PANCRELIPASE PROTEASE
     Indication: Product used for unknown indication
     Route: 048
  4. COUMADIN [Concomitant]
     Active Substance: WARFARIN SODIUM
     Indication: Product used for unknown indication

REACTIONS (14)
  - Chronic obstructive pulmonary disease [Recovering/Resolving]
  - Blood iron decreased [Unknown]
  - Vitamin B complex deficiency [Unknown]
  - Urinary tract infection [Unknown]
  - International normalised ratio fluctuation [Not Recovered/Not Resolved]
  - Influenza [Unknown]
  - Vitamin D abnormal [Not Recovered/Not Resolved]
  - Abnormal faeces [Unknown]
  - Constipation [Recovered/Resolved]
  - Drug ineffective [Recovered/Resolved]
  - Constipation [Unknown]
  - Diarrhoea [Unknown]
  - Abdominal distension [Unknown]
  - Abdominal pain upper [Unknown]

NARRATIVE: CASE EVENT DATE: 20240101
